FAERS Safety Report 6373780-6 (Version None)
Quarter: 2009Q3

REPORT INFORMATION
  Report Type: 
  Country: None (occurrence: None)
  Receive Date: 20090924
  Receipt Date: 20090603
  Transmission Date: 20100115
  Serious: Yes (Death)
  Sender: FDA-Public Use
  Company Number: US-ASTRAZENECA-2009UW14110

PATIENT
  Age: 42 Year
  Sex: Female

DRUGS (2)
  1. SEROQUEL XR [Suspect]
     Dosage: 1800 MG
     Route: 048
  2. TEGRETOL [Suspect]
     Route: 048

REACTIONS (1)
  - OVERDOSE [None]
